FAERS Safety Report 5284911-3 (Version None)
Quarter: 2007Q2

REPORT INFORMATION
  Report Type: 
  Country: None (occurrence: None)
  Receive Date: 20070403
  Receipt Date: 20070329
  Transmission Date: 20071010
  Serious: Yes (Death)
  Sender: FDA-Public Use
  Company Number: 2007AC00550

PATIENT
  Age: 66 Year
  Sex: Female

DRUGS (4)
  1. SEROQUEL [Suspect]
     Indication: ANTIDEPRESSANT THERAPY
     Route: 048
     Dates: start: 20070326
  2. ZYPREXA [Concomitant]
     Indication: ANTIDEPRESSANT THERAPY
     Dates: end: 20070326
  3. REMERGON [Concomitant]
     Indication: ANTIDEPRESSANT THERAPY
  4. DEPAKENE [Concomitant]
     Indication: EPILEPSY

REACTIONS (1)
  - SUDDEN DEATH [None]
